FAERS Safety Report 10757467 (Version 1)
Quarter: 2015Q1

REPORT INFORMATION
  Report Type: Spontaneous
  Country: US (occurrence: None)
  Receive Date: 20150202
  Receipt Date: 20150202
  Transmission Date: 20150721
  Serious: Yes (Hospitalization, Disabling)
  Sender: FDA-Public Use
  Company Number: None

PATIENT
  Age: 70 Year
  Sex: Female
  Weight: 49.9 kg

DRUGS (12)
  1. LEVOTHYROXINE [Concomitant]
     Active Substance: LEVOTHYROXINE
  2. OMEGA 3 [Concomitant]
     Active Substance: OMEGA-3 FATTY ACIDS
  3. NAPROXEN. [Concomitant]
     Active Substance: NAPROXEN
  4. LISINOPRIL AND HYDROCHLOROTHIAZIDE [Concomitant]
     Active Substance: HYDROCHLOROTHIAZIDE\LISINOPRIL
  5. OMEPRAZOLE. [Concomitant]
     Active Substance: OMEPRAZOLE
  6. VENLAFAXINE [Concomitant]
     Active Substance: VENLAFAXINE HYDROCHLORIDE
  7. BUPROPION [Concomitant]
     Active Substance: BUPROPION
  8. LECITHIN [Concomitant]
     Active Substance: LECITHIN
  9. BUPIVACAINE [Suspect]
     Active Substance: BUPIVACAINE
     Indication: BONE PAIN
     Dosage: INJECTION, INTO THE REGION OF THE ISCHIAL TUBEROCIT
  10. COQ10 [Concomitant]
     Active Substance: UBIDECARENONE
  11. MULTIVITAMINS [Concomitant]
     Active Substance: VITAMINS
  12. BACLOFEN. [Concomitant]
     Active Substance: BACLOFEN

REACTIONS (3)
  - Muscle rigidity [None]
  - Muscle spasticity [None]
  - Abasia [None]

NARRATIVE: CASE EVENT DATE: 20140601
